FAERS Safety Report 16692481 (Version 1)
Quarter: 2019Q3

REPORT INFORMATION
  Report Type: Report from Study
  Country: JP (occurrence: JP)
  Receive Date: 20190812
  Receipt Date: 20190812
  Transmission Date: 20191004
  Serious: Yes (Other)
  Sender: FDA-Public Use
  Company Number: JP-UCBSA-2019023243

PATIENT
  Age: 20 Year
  Sex: Male

DRUGS (4)
  1. LEVETIRACETAM. [Suspect]
     Active Substance: LEVETIRACETAM
     Indication: TONIC CONVULSION
     Dosage: 250 MILLIGRAM, 2X/DAY (BID)
     Route: 048
     Dates: start: 20170329, end: 20170627
  2. FYCOMPA [Concomitant]
     Active Substance: PERAMPANEL
     Indication: TONIC CONVULSION
     Route: 048
     Dates: start: 20170628, end: 20170908
  3. VALPROATE NA [Concomitant]
     Active Substance: VALPROATE SODIUM
     Indication: TONIC CONVULSION
     Route: 048
     Dates: start: 20170329
  4. FYCOMPA [Concomitant]
     Active Substance: PERAMPANEL
     Route: 048
     Dates: start: 20170909

REACTIONS (4)
  - Seizure [Recovering/Resolving]
  - Irritability [Recovered/Resolved]
  - Off label use [Unknown]
  - Aggression [Recovered/Resolved]

NARRATIVE: CASE EVENT DATE: 20170329
